FAERS Safety Report 6447941-1 (Version None)
Quarter: 2009Q4

REPORT INFORMATION
  Report Type: 
  Country: None (occurrence: None)
  Receive Date: 20091120
  Receipt Date: 20091112
  Transmission Date: 20100525
  Serious: Yes (Hospitalization, Other)
  Sender: FDA-Public Use
  Company Number: JP-JNJFOC-20091003882

PATIENT
  Sex: Male

DRUGS (2)
  1. LOPEMIN [Suspect]
     Indication: DIARRHOEA
     Route: 048
     Dates: start: 20081125, end: 20081126
  2. MIYA BM [Concomitant]
     Route: 048

REACTIONS (5)
  - DRUG PRESCRIBING ERROR [None]
  - GASTROENTERITIS ADENOVIRUS [None]
  - HYDRONEPHROSIS [None]
  - NEPHROLITHIASIS [None]
  - URINARY RETENTION [None]
